FAERS Safety Report 7644929-X (Version None)
Quarter: 2011Q3

REPORT INFORMATION
  Report Type: 
  Country: None (occurrence: None)
  Receive Date: 20110729
  Receipt Date: 20110708
  Transmission Date: 20111222
  Serious: Yes (Hospitalization)
  Sender: FDA-Public Use
  Company Number: US-GLAXOSMITHKLINE-A0868735A

PATIENT
  Age: 61 Year
  Sex: Male
  Weight: 100.9 kg

DRUGS (7)
  1. ZOCOR [Concomitant]
  2. PROTONIX [Concomitant]
  3. RESTORIL [Concomitant]
  4. GLIPIZIDE [Concomitant]
  5. NORVASC [Concomitant]
  6. INSULIN [Concomitant]
  7. AVANDIA [Suspect]
     Indication: DIABETES MELLITUS
     Dosage: 4MG PER DAY
     Route: 048
     Dates: start: 20060101, end: 20070523

REACTIONS (4)
  - MYOCARDIAL INFARCTION [None]
  - FLUID RETENTION [None]
  - CARDIAC FAILURE CONGESTIVE [None]
  - CORONARY ARTERY DISEASE [None]
